FAERS Safety Report 11788142 (Version 2)
Quarter: 2016Q4

REPORT INFORMATION
  Report Type: Report from Study
  Country: CA (occurrence: CA)
  Receive Date: 20151201
  Receipt Date: 20161206
  Transmission Date: 20170206
  Serious: Yes (Hospitalization, Other)
  Sender: FDA-Public Use
  Company Number: CA-ROCHE-1610121

PATIENT
  Sex: Female
  Weight: 102.5 kg

DRUGS (12)
  1. ACTEMRA [Suspect]
     Active Substance: TOCILIZUMAB
     Indication: RHEUMATOID ARTHRITIS
     Route: 042
     Dates: start: 20141021, end: 20160321
  2. ORENCIA [Concomitant]
     Active Substance: ABATACEPT
  3. FOLIC ACID. [Concomitant]
     Active Substance: FOLIC ACID
  4. VENLAFAXINE [Concomitant]
     Active Substance: VENLAFAXINE HYDROCHLORIDE
  5. LYRICA [Concomitant]
     Active Substance: PREGABALIN
  6. RABEPRAZOLE [Concomitant]
     Active Substance: RABEPRAZOLE
  7. AMITRIPTYLINE [Concomitant]
     Active Substance: AMITRIPTYLINE
  8. VALSARTAN. [Concomitant]
     Active Substance: VALSARTAN
  9. LASIX [Concomitant]
     Active Substance: FUROSEMIDE
  10. PLAQUENIL [Concomitant]
     Active Substance: HYDROXYCHLOROQUINE SULFATE
  11. ATENOLOL. [Concomitant]
     Active Substance: ATENOLOL
  12. METHOTREXATE. [Concomitant]
     Active Substance: METHOTREXATE

REACTIONS (3)
  - Cataract [Unknown]
  - Malaise [Unknown]
  - Drug ineffective [Unknown]
